FAERS Safety Report 15721571 (Version 3)
Quarter: 2019Q1

REPORT INFORMATION
  Report Type: Report from Study
  Country: IT (occurrence: IT)
  Receive Date: 20181214
  Receipt Date: 20190124
  Transmission Date: 20190417
  Serious: Yes (Hospitalization, Other)
  Sender: FDA-Public Use
  Company Number: IT-BRISTOL-MYERS SQUIBB COMPANY-BMS-2018-116689

PATIENT
  Age: 88 Year
  Sex: Female

DRUGS (1)
  1. WARFARIN SODIUM. [Suspect]
     Active Substance: WARFARIN SODIUM
     Indication: ATRIAL FIBRILLATION
     Dosage: 25 MG, 1 WEEK
     Route: 048
     Dates: start: 20050126, end: 20170828

REACTIONS (7)
  - Intestinal haemorrhage [Recovering/Resolving]
  - Pallor [Recovering/Resolving]
  - Platelet count decreased [Unknown]
  - Lymphocyte percentage decreased [Unknown]
  - Melaena [Recovering/Resolving]
  - Asthenia [Recovering/Resolving]
  - Rectal haemorrhage [Recovering/Resolving]

NARRATIVE: CASE EVENT DATE: 20170821
